FAERS Safety Report 9019424 (Version 1)
Quarter: 2013Q1

REPORT INFORMATION
  Report Type: Spontaneous
  Country: JP (occurrence: JP)
  Receive Date: 20130118
  Receipt Date: 20130118
  Transmission Date: 20140127
  Serious: Yes (Hospitalization)
  Sender: FDA-Public Use
  Company Number: JP-EISAI INC-E2020-11853-SPO-JP

PATIENT
  Age: 76 Year
  Sex: Female

DRUGS (1)
  1. DONEPEZIL [Suspect]
     Indication: DEMENTIA ALZHEIMER^S TYPE
     Dosage: 3 MG/DAY
     Route: 048

REACTIONS (1)
  - Behavioural and psychiatric symptoms of dementia [Recovering/Resolving]
